FAERS Safety Report 9712294 (Version 1)
Quarter: 2013Q4

REPORT INFORMATION
  Report Type: Spontaneous
  Country: IT (occurrence: IT)
  Receive Date: 20131126
  Receipt Date: 20131126
  Transmission Date: 20140711
  Serious: Yes (Hospitalization)
  Sender: FDA-Public Use
  Company Number: IT-TEVA-445010ISR

PATIENT
  Age: 71 Year
  Sex: Female

DRUGS (7)
  1. CARBOLITHIUM [Suspect]
     Indication: DEPRESSION
     Dosage: 2 DOSAGE FORMS DAILY; 300MG
     Route: 048
     Dates: start: 20131014, end: 20131022
  2. CARBOLITHIUM [Suspect]
     Dosage: 1 DOSAGE FORMS DAILY; 300MG
     Route: 048
     Dates: start: 20131014, end: 20131022
  3. CARBOLITHIUM [Suspect]
     Dosage: 150MG
  4. FEVARIN 100 MG [Concomitant]
     Route: 048
  5. XANAX [Concomitant]
     Route: 048
  6. MIRTAZAPINA [Concomitant]
     Route: 048
  7. EN (CLORDEMETILDIAZEPAM) [Concomitant]

REACTIONS (5)
  - Tremor [Unknown]
  - Vomiting [Unknown]
  - Gait disturbance [Unknown]
  - Respiratory failure [Unknown]
  - Toxicity to various agents [Unknown]
